FAERS Safety Report 17271558 (Version 1)
Quarter: 2020Q1

REPORT INFORMATION
  Report Type: Spontaneous
  Country: FR (occurrence: FR)
  Receive Date: 20200115
  Receipt Date: 20200115
  Transmission Date: 20200409
  Serious: Yes (Hospitalization)
  Sender: FDA-Public Use
  Company Number: FR-ROCHE-2517675

PATIENT
  Age: 52 Year
  Sex: Male

DRUGS (3)
  1. VALIUM [Suspect]
     Active Substance: DIAZEPAM
     Indication: INTENTIONAL PRODUCT MISUSE
     Route: 048
     Dates: end: 201904
  2. LYRICA [Suspect]
     Active Substance: PREGABALIN
     Indication: INTENTIONAL PRODUCT MISUSE
     Route: 048
     Dates: end: 201904
  3. TRIHEXYPHENIDYLE [Suspect]
     Active Substance: TRIHEXYPHENIDYL
     Indication: INTENTIONAL PRODUCT MISUSE
     Route: 048
     Dates: end: 201904

REACTIONS (3)
  - Drug abuse [Unknown]
  - Hypotension [Recovered/Resolved]
  - Coma [Recovered/Resolved]

NARRATIVE: CASE EVENT DATE: 20190405
